FAERS Safety Report 23993593 (Version 1)
Quarter: 2024Q2

REPORT INFORMATION
  Report Type: Spontaneous
  Country: GB (occurrence: GB)
  Receive Date: 20240620
  Receipt Date: 20240620
  Transmission Date: 20240716
  Serious: Yes (Death, Hospitalization, Other)
  Sender: FDA-Public Use
  Company Number: GB-ROCHE-3578535

PATIENT
  Sex: Male

DRUGS (9)
  1. CAPECITABINE [Suspect]
     Active Substance: CAPECITABINE
     Indication: Pancreatic neuroendocrine tumour
     Route: 065
  2. CAPECITABINE [Suspect]
     Active Substance: CAPECITABINE
     Indication: Pancreatic neuroendocrine tumour
     Dosage: TWICE DAILY/FIRST-LINE TREATMENT
     Route: 065
  3. OLANZAPINE [Suspect]
     Active Substance: OLANZAPINE
     Indication: Product used for unknown indication
     Route: 065
  4. TEMODAL [Suspect]
     Active Substance: TEMOZOLOMIDE
     Indication: Myelosuppression
     Dosage: FIRST-LINE TREATMENT
     Route: 065
  5. TEMODAL [Suspect]
     Active Substance: TEMOZOLOMIDE
     Indication: Myelosuppression
     Route: 065
  6. TEMODAL [Suspect]
     Active Substance: TEMOZOLOMIDE
     Indication: Myelosuppression
     Dosage: OVERDOSE OF TEMOZOLOMIDE (TEMODAL) OVER A TWO-DAY PERIOD (AT 640 MG IN TOTAL ON DAY ONE, AND 630 ...
     Route: 065
  7. TEMODAL [Suspect]
     Active Substance: TEMOZOLOMIDE
     Indication: Myelosuppression
     Route: 065
  8. PIPERACILLIN SODIUM\TAZOBACTAM SODIUM [Suspect]
     Active Substance: PIPERACILLIN SODIUM\TAZOBACTAM SODIUM
     Indication: Pancreatic neuroendocrine tumour
     Route: 065
  9. PIPERACILLIN SODIUM\TAZOBACTAM SODIUM [Suspect]
     Active Substance: PIPERACILLIN SODIUM\TAZOBACTAM SODIUM
     Indication: Pancreatic neuroendocrine tumour
     Route: 065

REACTIONS (8)
  - Arrhythmia [Fatal]
  - Off label use [Unknown]
  - Malignant neoplasm progression [Not Recovered/Not Resolved]
  - Cardiotoxicity [Not Recovered/Not Resolved]
  - Electrolyte imbalance [Not Recovered/Not Resolved]
  - Sepsis [Not Recovered/Not Resolved]
  - Product administration error [Unknown]
  - Hypocalcaemia [Not Recovered/Not Resolved]
